FAERS Safety Report 5330023-X (Version None)
Quarter: 2007Q2

REPORT INFORMATION
  Report Type: 
  Country: None (occurrence: None)
  Receive Date: 20070521
  Receipt Date: 20070521
  Transmission Date: 20071010
  Serious: Yes (Other)
  Sender: FDA-Public Use
  Company Number: D0052669A

PATIENT
  Sex: Female

DRUGS (1)
  1. LAMICTAL [Suspect]
     Dosage: 150MG TWICE PER DAY
     Route: 048
     Dates: start: 19970101

REACTIONS (1)
  - HYPOCHROMIC ANAEMIA [None]
